FAERS Safety Report 12651607 (Version 2)
Quarter: 2016Q3

REPORT INFORMATION
  Report Type: Spontaneous
  Country: FR (occurrence: FR)
  Receive Date: 20160815
  Receipt Date: 20160819
  Transmission Date: 20161109
  Serious: Yes (Death, Hospitalization)
  Sender: FDA-Public Use
  Company Number: FR-JNJFOC-20160808072

PATIENT
  Sex: Male
  Weight: 72 kg

DRUGS (4)
  1. PYOSTACINE [Concomitant]
     Active Substance: PRISTINAMYCIN
     Route: 065
  2. BACTRIM [Concomitant]
     Active Substance: SULFAMETHOXAZOLE\TRIMETHOPRIM
     Route: 065
  3. VALACICLOVIR [Concomitant]
     Active Substance: VALACYCLOVIR HYDROCHLORIDE
     Route: 065
  4. IMBRUVICA [Suspect]
     Active Substance: IBRUTINIB
     Indication: NON-HODGKIN^S LYMPHOMA
     Dosage: 640.0 MG
     Route: 048
     Dates: start: 201503, end: 20160715

REACTIONS (1)
  - Interstitial lung disease [Fatal]

NARRATIVE: CASE EVENT DATE: 2016
